FAERS Safety Report 20562875 (Version 2)
Quarter: 2022Q2

REPORT INFORMATION
  Report Type: Other
  Country: US (occurrence: None)
  Receive Date: 20220307
  Receipt Date: 20220527
  Transmission Date: 20220721
  Serious: No
  Sender: FDA-Public Use
  Company Number: US-ROCHE-3040371

PATIENT
  Age: 40 Year
  Sex: Female
  Weight: 51.756 kg

DRUGS (2)
  1. OCREVUS [Suspect]
     Active Substance: OCRELIZUMAB
     Indication: Relapsing-remitting multiple sclerosis
     Dosage: TWO 300 MG VIALS- 600 MG
     Route: 042
     Dates: start: 202006
  2. OCREVUS [Suspect]
     Active Substance: OCRELIZUMAB
     Route: 042
     Dates: start: 20190909

REACTIONS (2)
  - Maternal exposure before pregnancy [Unknown]
  - COVID-19 [Unknown]

NARRATIVE: CASE EVENT DATE: 20211101
